FAERS Safety Report 9153544 (Version 1)
Quarter: 2013Q1

REPORT INFORMATION
  Report Type: Spontaneous
  Country: GB (occurrence: None)
  Receive Date: 20130204
  Receipt Date: 20130204
  Transmission Date: 20140127
  Serious: Yes (Other)
  Sender: FDA-Public Use
  Company Number: AUR-APL-2013-01064

PATIENT
  Sex: Female

DRUGS (1)
  1. METOPROLOL (METOPROLOL) [Suspect]
     Indication: HYPERTENSION
     Route: 048

REACTIONS (1)
  - Neoplasm malignant [None]
